FAERS Safety Report 4847686-5 (Version None)
Quarter: 2005Q4

REPORT INFORMATION
  Report Type: 
  Country: None (occurrence: None)
  Receive Date: 20051205
  Receipt Date: 20051118
  Transmission Date: 20060501
  Serious: Yes (Hospitalization, Other)
  Sender: FDA-Public Use
  Company Number: 2005BI009464

PATIENT
  Age: 20 Year
  Sex: Male
  Weight: 72.5 kg

DRUGS (24)
  1. NATALIZUMAB (NATALIZUMAB) [Suspect]
     Indication: CROHN'S DISEASE
     Dosage: 300 MG; QM; IV
     Route: 042
     Dates: start: 20030623, end: 20050125
  2. PARACETAMOL [Concomitant]
  3. TELFAST [Concomitant]
  4. PREDNISONE [Concomitant]
  5. LOSEC [Concomitant]
  6. CIPROFLOXACIN [Concomitant]
  7. MYCOSTATIN [Concomitant]
  8. AZATHIOPRINE [Concomitant]
  9. MOVICOL [Concomitant]
  10. OSTEO 500 [Concomitant]
  11. PENTASA [Concomitant]
  12. PREDNISONE [Concomitant]
  13. PREDNISONE [Suspect]
  14. PREDNISONE [Suspect]
  15. PREDNISONE [Suspect]
  16. PREDNISONE [Suspect]
  17. PREDNISONE [Suspect]
  18. PREDNISONE [Suspect]
  19. PREDNISONE [Suspect]
  20. PREDNISONE [Suspect]
  21. PREDNISONE [Suspect]
  22. PREDNISONE [Suspect]
  23. PREDNISONE [Suspect]
  24. PREDNISONE [Suspect]

REACTIONS (10)
  - ABDOMINAL ABSCESS [None]
  - ANASTOMOTIC LEAK [None]
  - CONDITION AGGRAVATED [None]
  - CROHN'S DISEASE [None]
  - HAEMOGLOBIN DECREASED [None]
  - MYCOBACTERIAL INFECTION [None]
  - PELVIC FLUID COLLECTION [None]
  - PERITONEAL TUBERCULOSIS [None]
  - POST PROCEDURAL DISCHARGE [None]
  - TUBERCULOSIS [None]
